FAERS Safety Report 20215446 (Version 1)
Quarter: 2021Q4

REPORT INFORMATION
  Report Type: Other
  Country: DE (occurrence: DE)
  Receive Date: 20211222
  Receipt Date: 20211222
  Transmission Date: 20220303
  Serious: Yes (Other)
  Sender: FDA-Public Use
  Company Number: DE-CELLTRION HEALTHCARE HUNGARY KFT-2021DE016252

PATIENT

DRUGS (1)
  1. RITUXIMAB [Suspect]
     Active Substance: RITUXIMAB
     Indication: Product used for unknown indication
     Dosage: 3. INFUSION
     Route: 065

REACTIONS (4)
  - Hypersensitivity [Unknown]
  - Progressive multifocal leukoencephalopathy [Unknown]
  - Erythema [Unknown]
  - Skin swelling [Unknown]
